FAERS Safety Report 15100253 (Version 1)
Quarter: 2018Q3

REPORT INFORMATION
  Report Type: Spontaneous
  Country: US (occurrence: US)
  Receive Date: 20180703
  Receipt Date: 20180703
  Transmission Date: 20181010
  Serious: Yes (Other)
  Sender: FDA-Public Use
  Company Number: US-ASTRAZENECA-2018SE84564

PATIENT
  Age: 52 Year

DRUGS (1)
  1. CRESTOR [Suspect]
     Active Substance: ROSUVASTATIN CALCIUM
     Dosage: 40.0MG UNKNOWN
     Route: 048

REACTIONS (4)
  - Coronary artery occlusion [Unknown]
  - Cardiac arrest [Unknown]
  - Coronary artery stenosis [Unknown]
  - Lipoprotein (a) increased [Unknown]
